FAERS Safety Report 5463984-9 (Version None)
Quarter: 2007Q3

REPORT INFORMATION
  Report Type: 
  Country: None (occurrence: None)
  Receive Date: 20070921
  Receipt Date: 20070914
  Transmission Date: 20080115
  Serious: Yes (Other)
  Sender: FDA-Public Use
  Company Number: US-ASTRAZENECA-2007UW21807

PATIENT
  Age: 30 Year
  Sex: Female

DRUGS (2)
  1. NEXIUM [Suspect]
     Indication: GASTROINTESTINAL DISORDER
     Route: 048
     Dates: start: 20070801
  2. AMOXICILLIN [Concomitant]

REACTIONS (3)
  - HYPERTENSION [None]
  - NEPHRITIS [None]
  - RENAL DISORDER [None]
